FAERS Safety Report 8272136-9 (Version None)
Quarter: 2012Q2

REPORT INFORMATION
  Report Type: 
  Country: None (occurrence: None)
  Receive Date: 20120410
  Receipt Date: 20120215
  Transmission Date: 20120825
  Serious: Yes (Other)
  Sender: FDA-Public Use
  Company Number: US-ASTRAZENECA-2012SE10961

PATIENT
  Sex: Female

DRUGS (2)
  1. VANDETANIB [Suspect]
     Route: 048
  2. VANDETANIB [Suspect]
     Indication: THYROID CANCER
     Route: 048

REACTIONS (2)
  - DIARRHOEA [None]
  - ELECTROCARDIOGRAM QT PROLONGED [None]
